FAERS Safety Report 10178073 (Version 7)
Quarter: 2016Q1

REPORT INFORMATION
  Report Type: Report from Study
  Country: US (occurrence: US)
  Receive Date: 20140518
  Receipt Date: 20160211
  Transmission Date: 20160525
  Serious: Yes (Other)
  Sender: FDA-Public Use
  Company Number: US-SA-2014SA062039

PATIENT
  Age: 65 Year
  Sex: Female

DRUGS (3)
  1. AUBAGIO [Suspect]
     Active Substance: TERIFLUNOMIDE
     Indication: MULTIPLE SCLEROSIS
     Dosage: THERAPY STOP DATE- 4 JAN (YEAR UNK)
     Route: 048
  2. ADVIL [Concomitant]
     Active Substance: IBUPROFEN
  3. AUBAGIO [Suspect]
     Active Substance: TERIFLUNOMIDE
     Indication: MULTIPLE SCLEROSIS
     Route: 048
     Dates: start: 20121101

REACTIONS (13)
  - Upper limb fracture [Unknown]
  - Foot fracture [Unknown]
  - Fibula fracture [Unknown]
  - Back disorder [Recovered/Resolved]
  - Fall [Recovered/Resolved]
  - Macular degeneration [Unknown]
  - Memory impairment [Unknown]
  - Fatigue [Unknown]
  - Muscular weakness [Recovered/Resolved]
  - Injection site reaction [Unknown]
  - Multiple sclerosis relapse [Recovered/Resolved]
  - Muscle spasms [Unknown]
  - Drug dose omission [Unknown]
